FAERS Safety Report 19665413 (Version 1)
Quarter: 2021Q3

REPORT INFORMATION
  Report Type: Spontaneous
  Country: US (occurrence: US)
  Receive Date: 20210805
  Receipt Date: 20210805
  Transmission Date: 20211014
  Serious: Yes (Other)
  Sender: FDA-Public Use
  Company Number: None

PATIENT
  Age: 74 Year
  Sex: Female
  Weight: 99.79 kg

DRUGS (8)
  1. ROSUVASTATIN. [Concomitant]
     Active Substance: ROSUVASTATIN
  2. COENZYME Q10 [Concomitant]
     Active Substance: DIETARY SUPPLEMENT\UBIDECARENONE
  3. ROSUVASTATIN CALCUM 5MG TABLET [Suspect]
     Active Substance: ROSUVASTATIN CALCIUM
     Indication: LOW DENSITY LIPOPROTEIN INCREASED
     Dosage: ?          QUANTITY:2 DF DOSAGE FORM;?
     Route: 048
     Dates: start: 20210405, end: 20210505
  4. FLUROSEMIDE [Concomitant]
  5. POTOSSIUM CHOLORIDE [Concomitant]
  6. HAWTHORNE [Concomitant]
  7. VITAMIN B12 [Concomitant]
     Active Substance: CYANOCOBALAMIN
  8. HERBAL TEAS [Concomitant]
     Active Substance: HERBALS

REACTIONS (2)
  - Malaise [None]
  - Cough [None]

NARRATIVE: CASE EVENT DATE: 20210413
